FAERS Safety Report 8006478-9 (Version None)
Quarter: 2011Q4

REPORT INFORMATION
  Report Type: 
  Country: None (occurrence: None)
  Receive Date: 20111226
  Receipt Date: 20111213
  Transmission Date: 20120403
  Serious: Yes (Hospitalization)
  Sender: FDA-Public Use
  Company Number: PHHO2011GB07308

PATIENT
  Sex: Male
  Weight: 79 kg

DRUGS (10)
  1. ANTINEOPLASTIC AGENTS [Suspect]
     Indication: METASTATIC RENAL CELL CARCINOMA
  2. TADALAFIL [Concomitant]
     Indication: ERECTILE DYSFUNCTION
     Dosage: 10 MG, PRN
     Route: 048
     Dates: start: 20110617
  3. OMEPRAZOLE [Concomitant]
     Indication: ANTACID THERAPY
     Dosage: 20 MG, QD
     Route: 048
     Dates: start: 20110426
  4. ACETAMINOPHEN [Concomitant]
     Indication: BACK PAIN
     Dosage: 1 G, PRN
     Route: 048
     Dates: start: 20110812
  5. AFINITOR [Suspect]
     Indication: METASTATIC RENAL CELL CARCINOMA
     Dosage: 10 MG, QD
     Route: 048
     Dates: start: 20110414, end: 20111130
  6. SUTENT [Suspect]
     Indication: METASTATIC RENAL CELL CARCINOMA
     Dosage: UNK
  7. IBUPROFEN [Concomitant]
     Indication: BACK PAIN
     Dosage: 400 MG, PRN
     Route: 048
     Dates: start: 20110815
  8. SIMVASTATIN [Concomitant]
     Indication: PROPHYLAXIS
     Dosage: 20 MG, QD
     Route: 048
     Dates: start: 20110803
  9. ADCAL-D3 [Concomitant]
     Indication: SUPPLEMENTATION THERAPY
     Dosage: 1.5 G, BID
     Route: 048
     Dates: start: 20110721
  10. TAMSULOSIN HCL [Concomitant]
     Indication: POLLAKIURIA
     Dosage: 400 MG, QD
     Route: 048
     Dates: start: 20110427

REACTIONS (3)
  - NEOPLASM PROGRESSION [None]
  - NEOPLASM MALIGNANT [None]
  - DYSPNOEA EXERTIONAL [None]
